FAERS Safety Report 13366704 (Version 1)
Quarter: 2017Q1

REPORT INFORMATION
  Report Type: Report from Study
  Country: TW (occurrence: TW)
  Receive Date: 20170323
  Receipt Date: 20170323
  Transmission Date: 20170429
  Serious: Yes (Hospitalization, Other)
  Sender: FDA-Public Use
  Company Number: TW-ELI_LILLY_AND_COMPANY-TW201703003831

PATIENT
  Age: 67 Year
  Sex: Female

DRUGS (1)
  1. FORTEO [Suspect]
     Active Substance: TERIPARATIDE
     Indication: OSTEOPOROSIS
     Dosage: 20 UG, QD
     Route: 058
     Dates: start: 20160513

REACTIONS (6)
  - Contrast media allergy [Unknown]
  - Renal impairment [Unknown]
  - Peripheral swelling [Unknown]
  - Pleural effusion [Unknown]
  - Effusion [Unknown]
  - Urinary retention [Unknown]

NARRATIVE: CASE EVENT DATE: 20170205
